FAERS Safety Report 9374776 (Version 1)
Quarter: 2013Q2

REPORT INFORMATION
  Report Type: Spontaneous
  Country: US (occurrence: US)
  Receive Date: 20130628
  Receipt Date: 20130628
  Transmission Date: 20140414
  Serious: Yes (Death)
  Sender: FDA-Public Use
  Company Number: US-PFIZER INC-2013191054

PATIENT
  Age: 55 Year
  Sex: Male

DRUGS (1)
  1. SUTENT [Suspect]
     Indication: SOFT TISSUE CANCER
     Dosage: 37.5 MG, UNK
     Dates: start: 20130322

REACTIONS (3)
  - Off label use [Fatal]
  - Disease progression [Fatal]
  - Soft tissue cancer [Fatal]
